FAERS Safety Report 5805244-X (Version None)
Quarter: 2008Q3

REPORT INFORMATION
  Report Type: 
  Country: None (occurrence: None)
  Receive Date: 20080703
  Receipt Date: 20080624
  Transmission Date: 20090109
  Serious: Yes (Life-Threatening, Hospitalization)
  Sender: FDA-Public Use
  Company Number: FABR-1000202

PATIENT
  Age: 62 Year
  Sex: Male
  Weight: 76.9 kg

DRUGS (20)
  1. FABRAZYME [Suspect]
     Indication: FABRY'S DISEASE
     Dosage: 75 MG, Q2W, INTRAVENOUS
     Route: 042
     Dates: start: 20050525
  2. FABRAZYME [Suspect]
  3. BENADRYL [Concomitant]
  4. ACETAMINOPHEN [Concomitant]
  5. IBUPROFEN [Concomitant]
  6. JANUVIA (SITAGLIPTIN PHOSPHATE) [Concomitant]
  7. SIMVASTATIN [Concomitant]
  8. BACLOFEN [Concomitant]
  9. WELLBUTRIN SR [Concomitant]
  10. GLUCOTROL XL [Concomitant]
  11. ATACAND [Concomitant]
  12. TRICOR [Concomitant]
  13. TRIMETHOPRIM [Concomitant]
  14. LASIX [Concomitant]
  15. GLUCOSAMINE SULFATE (GLUCOSAMINE SULFATE) [Concomitant]
  16. ASPIRIN [Concomitant]
  17. MULTIVITAMIN [Concomitant]
  18. COPAXONE [Concomitant]
  19. XYLOCAINE JELLY 2% EX GEL [Concomitant]
  20. ELIDEL 1% EX CREAM [Concomitant]

REACTIONS (11)
  - ANAPHYLACTIC REACTION [None]
  - BLOOD GLUCOSE INCREASED [None]
  - BRADYCARDIA [None]
  - BRONCHOSPASM [None]
  - CARDIO-RESPIRATORY ARREST [None]
  - FATIGUE [None]
  - FLUSHING [None]
  - LETHARGY [None]
  - MALAISE [None]
  - SINUS TACHYCARDIA [None]
  - UNRESPONSIVE TO STIMULI [None]
